FAERS Safety Report 4815529-1 (Version None)
Quarter: 2005Q4

REPORT INFORMATION
  Report Type: 
  Country: None (occurrence: None)
  Receive Date: 20051028
  Receipt Date: 20051028
  Transmission Date: 20060501
  Serious: Yes (Hospitalization)
  Sender: FDA-Public Use
  Company Number: None

PATIENT
  Age: 85 Year
  Sex: Male
  Weight: 78 kg

DRUGS (7)
  1. GATIFLOXACIN [Suspect]
     Indication: URINARY TRACT INFECTION
     Dosage: 400 MG ONCE DAILY PO
     Route: 048
     Dates: start: 20050717, end: 20050718
  2. QUININE SULFATE [Concomitant]
  3. SIMVASTATIN [Concomitant]
  4. ROSIGLITAZONE [Concomitant]
  5. LISINOPRIL [Concomitant]
  6. PRESSURE PRECISION QID TEST STRIPS [Concomitant]
  7. GLIPIZIDE [Concomitant]

REACTIONS (6)
  - AGGRESSION [None]
  - ANOREXIA [None]
  - DECREASED INTEREST [None]
  - DEPRESSED LEVEL OF CONSCIOUSNESS [None]
  - HYPOGLYCAEMIA [None]
  - MOANING [None]
